FAERS Safety Report 21408182 (Version 1)
Quarter: 2022Q4

REPORT INFORMATION
  Report Type: Spontaneous
  Country: CH (occurrence: CH)
  Receive Date: 20221004
  Receipt Date: 20221004
  Transmission Date: 20230113
  Serious: Yes (Other)
  Sender: FDA-Public Use
  Company Number: None

PATIENT
  Age: 91 Year
  Sex: Female

DRUGS (18)
  1. IBUPROFEN [Suspect]
     Active Substance: IBUPROFEN
     Indication: Product used for unknown indication
     Dosage: UNIT DOSE :   600MG, FREQUENCY TIME : 12 HOURS
     Route: 065
     Dates: end: 20220812
  2. PREGABALIN [Suspect]
     Active Substance: PREGABALIN
     Indication: Product used for unknown indication
     Dosage: UNIT DOSE :  25 MG, FREQUENCY TIME : 12 HOURS
     Route: 065
     Dates: end: 20220819
  3. PREGABALIN [Suspect]
     Active Substance: PREGABALIN
     Dosage: FREQUENCY TIME : 12 HOURS, UNIT DOSE :   50MG
     Route: 065
     Dates: start: 20220820
  4. PREDNISONE [Suspect]
     Active Substance: PREDNISONE
     Indication: Product used for unknown indication
     Dosage: UNIT DOSE : 5 MG, DURATION : 2 DAYS, FREQUENCY TIME : 1 DAY
     Route: 065
     Dates: start: 20220810, end: 20220812
  5. HYDROCHLOROTHIAZIDE\VALSARTAN [Suspect]
     Active Substance: HYDROCHLOROTHIAZIDE\VALSARTAN
     Indication: Product used for unknown indication
     Route: 065
     Dates: end: 20220812
  6. HYDROCHLOROTHIAZIDE\VALSARTAN [Suspect]
     Active Substance: HYDROCHLOROTHIAZIDE\VALSARTAN
     Dosage: DURATION : 6 DAYS
     Route: 065
     Dates: start: 20220816, end: 20220822
  7. ESOMEPRAZOLE [Suspect]
     Active Substance: ESOMEPRAZOLE
     Indication: Product used for unknown indication
     Dosage: UNIT DOSE :   20 MG, FREQUENCY TIME : 1 DAY
     Route: 065
     Dates: end: 20220823
  8. ESOMEPRAZOLE [Suspect]
     Active Substance: ESOMEPRAZOLE
     Dosage: FREQUENCY TIME : 1 DAY, UNIT DOSE :   40MG,   DURATION : 8 DAYS
     Route: 065
     Dates: start: 20220824, end: 20220901
  9. DIETARY SUPPLEMENT\MINERALS\VITAMINS [Suspect]
     Active Substance: DIETARY SUPPLEMENT\MINERALS\VITAMINS
     Indication: Product used for unknown indication
     Route: 065
     Dates: end: 20220812
  10. METAMUCIL [Suspect]
     Active Substance: PLANTAGO SEED
     Indication: Product used for unknown indication
     Dosage: UNIT DOSE : 1 DOSAGE FORM ,  FREQUENCY TIME : 1 DAY
     Route: 065
     Dates: end: 20220812
  11. MORPHINE HYDROCHLORIDE [Suspect]
     Active Substance: MORPHINE HYDROCHLORIDE
     Indication: Product used for unknown indication
     Dosage: UNIT DOSE :   2.5 MG,   DURATION : 15 DAYS
     Route: 065
     Dates: start: 20220812, end: 20220827
  12. ENOXAPARIN SODIUM [Suspect]
     Active Substance: ENOXAPARIN SODIUM
     Indication: Product used for unknown indication
     Dosage: UNIT DOSE :  40MG, DURATION : 20 DAYS, FREQUENCY TIME : 1 DAY
     Route: 065
     Dates: start: 20220813, end: 20220902
  13. DAFALGAN [Suspect]
     Active Substance: ACETAMINOPHEN
     Indication: Product used for unknown indication
     Dosage: UNIT DOSE :  1 GRAM, FREQUENCY TIME : 12 HOURS
     Route: 065
     Dates: end: 20220812
  14. DAFALGAN [Suspect]
     Active Substance: ACETAMINOPHEN
     Dosage: UNIT DOSE :   1 GRAM, FREQUENCY TIME : 1 DAY,   DURATION : 1 DAY
     Route: 065
     Dates: start: 20220815, end: 20220816
  15. DIOVAN [Concomitant]
     Active Substance: VALSARTAN
     Indication: Product used for unknown indication
     Dosage: UNIT DOSE :  160 MG, FREQUENCY TIME : 1 DAY
     Dates: start: 20220823
  16. CALCIUM\CHOLECALCIFEROL [Concomitant]
     Active Substance: CALCIUM\CHOLECALCIFEROL
     Indication: Product used for unknown indication
     Dates: end: 20220812
  17. CALCIUM\CHOLECALCIFEROL [Concomitant]
     Active Substance: CALCIUM\CHOLECALCIFEROL
     Dates: start: 20220902
  18. ZOLPIDEM TARTRATE [Concomitant]
     Active Substance: ZOLPIDEM TARTRATE
     Indication: Product used for unknown indication
     Dosage: DURATION : 2 DAYS
     Dates: start: 20220810, end: 20220812

REACTIONS (1)
  - Cholestasis [Not Recovered/Not Resolved]

NARRATIVE: CASE EVENT DATE: 20220812
